FAERS Safety Report 17252832 (Version 2)
Quarter: 2020Q1

REPORT INFORMATION
  Report Type: Spontaneous
  Country: JP (occurrence: JP)
  Receive Date: 20200109
  Receipt Date: 20200316
  Transmission Date: 20200409
  Serious: Yes (Other)
  Sender: FDA-Public Use
  Company Number: JP-PFIZER INC-2020006032

PATIENT
  Age: 18 Year
  Sex: Male
  Weight: 57 kg

DRUGS (11)
  1. SPIRONOLACTONE. [Concomitant]
     Active Substance: SPIRONOLACTONE
     Dosage: UNK
     Dates: start: 20191213
  2. PRECEDEX [Suspect]
     Active Substance: DEXMEDETOMIDINE HYDROCHLORIDE
     Indication: VALVULOPLASTY CARDIAC
     Dosage: 6 ML/H, 18:00-6:00
     Route: 041
     Dates: start: 20191211, end: 20191212
  3. LASIX [Concomitant]
     Active Substance: FUROSEMIDE
     Dosage: UNK
     Dates: start: 20191211
  4. PRECEDEX [Suspect]
     Active Substance: DEXMEDETOMIDINE HYDROCHLORIDE
     Dosage: 4 ML/H
     Route: 041
     Dates: start: 20191213, end: 20191213
  5. SOLDEM 3A [Concomitant]
     Active Substance: CARBOHYDRATES\POTASSIUM CHLORIDE\SODIUM CHLORIDE\SODIUM LACTATE
     Dosage: UNK
     Dates: start: 20191211
  6. FENTANYL. [Suspect]
     Active Substance: FENTANYL
     Indication: VALVULOPLASTY CARDIAC
     Dosage: 20 ML 1000 UG
     Route: 041
     Dates: start: 20191211, end: 20191211
  7. FUROSEMIDE. [Concomitant]
     Active Substance: FUROSEMIDE
     Dosage: UNK
     Dates: start: 20191213
  8. TAKECAB [Concomitant]
     Active Substance: VONOPRAZAN FUMURATE
     Dosage: UNK
     Dates: start: 20191213
  9. PRECEDEX [Suspect]
     Active Substance: DEXMEDETOMIDINE HYDROCHLORIDE
     Dosage: 3-5 ML/H
     Route: 041
     Dates: start: 20191212, end: 20191212
  10. DIPRIVAN [Suspect]
     Active Substance: PROPOFOL
     Indication: VALVULOPLASTY CARDIAC
     Dosage: 100 MG, UNK
     Route: 041
     Dates: start: 20191211, end: 20191211
  11. PICILLIBACTA [Concomitant]
     Active Substance: AMPICILLIN SODIUM\SULBACTAM SODIUM
     Dosage: UNK
     Dates: start: 20191211, end: 20191213

REACTIONS (1)
  - Neuroleptic malignant syndrome [Recovered/Resolved]

NARRATIVE: CASE EVENT DATE: 20191214
